FAERS Safety Report 17201507 (Version 1)
Quarter: 2019Q4

REPORT INFORMATION
  Report Type: Spontaneous
  Country: US (occurrence: US)
  Receive Date: 20191203
  Receipt Date: 20191203
  Transmission Date: 20200122
  Serious: Yes (Hospitalization)
  Sender: FDA-Public Use
  Company Number: None

PATIENT
  Age: 15 Year
  Sex: Male
  Weight: 55.7 kg

DRUGS (10)
  1. CISPLATIN. [Concomitant]
     Active Substance: CISPLATIN
     Dates: end: 20191114
  2. PEGFILGRASTIM [Concomitant]
     Active Substance: PEGFILGRASTIM
  3. ZINECARD [Suspect]
     Active Substance: DEXRAZOXANE HYDROCHLORIDE
     Dates: end: 20191121
  4. GRANISETRON [Concomitant]
     Active Substance: GRANISETRON
  5. SCOPOLAMINE TRANSDERMAL FILM [Concomitant]
  6. MIRALAX ORAL PODWER [Concomitant]
  7. SULFAMETHOXAZOLE-TRIMETHOPRIM [Concomitant]
     Active Substance: SULFAMETHOXAZOLE\TRIMETHOPRIM
  8. RANITIDINE. [Concomitant]
     Active Substance: RANITIDINE
  9. NEXAVAR [Suspect]
     Active Substance: SORAFENIB
     Dates: end: 20191121
  10. DOXORUBICIN HYDROCHLORIDE. [Suspect]
     Active Substance: DOXORUBICIN HYDROCHLORIDE
     Dates: end: 20191115

REACTIONS (8)
  - Epistaxis [None]
  - Dehydration [None]
  - Hypophagia [None]
  - Coagulopathy [None]
  - Hyperbilirubinaemia [None]
  - Nausea [None]
  - Jaundice [None]
  - Hepatic function abnormal [None]

NARRATIVE: CASE EVENT DATE: 20191118
